FAERS Safety Report 24621101 (Version 1)
Quarter: 2024Q4

REPORT INFORMATION
  Report Type: Spontaneous
  Country: US (occurrence: None)
  Receive Date: 20241114
  Receipt Date: 20241114
  Transmission Date: 20250115
  Serious: Yes (Life-Threatening, Disabling)
  Sender: Public
  Company Number: None

PATIENT
  Age: 82 Year
  Sex: Male

DRUGS (2)
  1. INGREZZA [Suspect]
     Active Substance: VALBENAZINE
     Indication: Tardive dyskinesia
     Dosage: 1 PILL PER DAY ONCE DAILY MOUTH
     Route: 048
     Dates: start: 20230818, end: 20230822
  2. INGREZZA [Suspect]
     Active Substance: VALBENAZINE
     Indication: Product prescribing issue

REACTIONS (4)
  - Nerve injury [None]
  - Neuralgia [None]
  - Adverse drug reaction [None]
  - Product complaint [None]

NARRATIVE: CASE EVENT DATE: 20230821
